FAERS Safety Report 14602359 (Version 1)
Quarter: 2018Q1

REPORT INFORMATION
  Report Type: Spontaneous
  Country: FR (occurrence: FR)
  Receive Date: 20180306
  Receipt Date: 20180306
  Transmission Date: 20180509
  Serious: Yes (Other)
  Sender: FDA-Public Use
  Company Number: FR-ROCHE-2082486

PATIENT
  Age: 15 Year
  Sex: Female
  Weight: 48 kg

DRUGS (3)
  1. XOLAIR [Suspect]
     Active Substance: OMALIZUMAB
     Indication: ASTHMA
  2. XOLAIR [Suspect]
     Active Substance: OMALIZUMAB
     Indication: ASTHMA
     Route: 058
     Dates: start: 2010
  3. POLYSORBATE 20. [Concomitant]
     Active Substance: POLYSORBATE 20

REACTIONS (5)
  - Dyspnoea [Unknown]
  - Urticaria [Unknown]
  - Fatigue [Unknown]
  - Anaphylactic reaction [Unknown]
  - Headache [Unknown]
